FAERS Safety Report 11936567 (Version 1)
Quarter: 2016Q1

REPORT INFORMATION
  Report Type: Spontaneous
  Country: US (occurrence: US)
  Receive Date: 20160121
  Receipt Date: 20160121
  Transmission Date: 20160526
  Serious: Yes (Death, Hospitalization, Other)
  Sender: FDA-Public Use
  Company Number: US-PFIZER INC-2016023457

PATIENT
  Age: 75 Year
  Sex: Female
  Weight: 109 kg

DRUGS (1)
  1. GABAPENTIN. [Suspect]
     Active Substance: GABAPENTIN
     Indication: NEUROPATHY PERIPHERAL
     Dosage: 600 MG, 3X/DAY

REACTIONS (5)
  - Mental disorder [Unknown]
  - Eating disorder [Unknown]
  - Death [Fatal]
  - Weight decreased [Unknown]
  - Fall [Unknown]

NARRATIVE: CASE EVENT DATE: 201505
